FAERS Safety Report 12485127 (Version 1)
Quarter: 2016Q2

REPORT INFORMATION
  Report Type: Spontaneous
  Country: US (occurrence: US)
  Receive Date: 20160621
  Receipt Date: 20160621
  Transmission Date: 20160815
  Serious: Yes (Hospitalization, Other)
  Sender: FDA-Public Use
  Company Number: US-ELI_LILLY_AND_COMPANY-US201606004258

PATIENT
  Sex: Female

DRUGS (3)
  1. ESTRADIOL. [Suspect]
     Active Substance: ESTRADIOL
     Indication: SALPINGO-OOPHORECTOMY BILATERAL
     Dosage: 50 UG, UNKNOWN
     Route: 065
  2. CYMBALTA [Suspect]
     Active Substance: DULOXETINE HYDROCHLORIDE
     Indication: DEPRESSION
     Dosage: UNK, UNKNOWN
     Route: 065
     Dates: start: 2015
  3. PRADAXA [Suspect]
     Active Substance: DABIGATRAN ETEXILATE MESYLATE
     Indication: PULMONARY EMBOLISM
     Dosage: UNK, UNKNOWN
     Route: 065

REACTIONS (6)
  - Pulmonary embolism [Recovering/Resolving]
  - Malaise [Unknown]
  - Pulmonary infarction [Unknown]
  - Synovial cyst [Unknown]
  - Cystocele [Unknown]
  - Pleurisy [Unknown]
